FAERS Safety Report 8491252-X (Version None)
Quarter: 2012Q3

REPORT INFORMATION
  Report Type: 
  Country: None (occurrence: None)
  Receive Date: 20120706
  Receipt Date: 20120702
  Transmission Date: 20120928
  Serious: Yes (Hospitalization, Other)
  Sender: FDA-Public Use
  Company Number: PHFR2012GB001199

PATIENT
  Sex: Male

DRUGS (4)
  1. LACTULOSE [Concomitant]
     Indication: CONSTIPATION
     Dosage: 10 ML,
     Route: 048
     Dates: start: 20120101
  2. CLOZARIL [Suspect]
     Dosage: 200 MG, DAILY
     Route: 048
  3. SENNA-MINT WAF [Concomitant]
     Indication: CONSTIPATION
     Dosage: 2 DF,
     Route: 048
     Dates: start: 20120101
  4. CLOZARIL [Suspect]
     Indication: SCHIZOPHRENIA
     Dosage: 300 MG, DAILY
     Route: 048
     Dates: start: 20111231

REACTIONS (15)
  - WHITE BLOOD CELL COUNT INCREASED [None]
  - TACHYCARDIA [None]
  - HYPOTONIA [None]
  - WEIGHT INCREASED [None]
  - CONVULSION [None]
  - INCREASED APPETITE [None]
  - MYOCLONUS [None]
  - CIRCULATORY COLLAPSE [None]
  - SINUS TACHYCARDIA [None]
  - MUSCULAR WEAKNESS [None]
  - LETHARGY [None]
  - CONSTIPATION [None]
  - ANTIPSYCHOTIC DRUG LEVEL BELOW THERAPEUTIC [None]
  - NEUTROPHIL COUNT INCREASED [None]
  - SEDATION [None]
